FAERS Safety Report 25358102 (Version 1)
Quarter: 2025Q2

REPORT INFORMATION
  Report Type: Spontaneous
  Country: ES (occurrence: ES)
  Receive Date: 20250526
  Receipt Date: 20250526
  Transmission Date: 20250717
  Serious: Yes (Death, Hospitalization)
  Sender: ROCHE
  Company Number: None

PATIENT
  Age: 53 Year
  Sex: Male

DRUGS (6)
  1. TRASTUZUMAB [Suspect]
     Active Substance: TRASTUZUMAB
     Indication: HER2 positive gastric cancer
     Route: 065
  2. PERTUZUMAB [Suspect]
     Active Substance: PERTUZUMAB
     Indication: HER2 positive gastric cancer
     Route: 065
  3. CAPECITABINE [Concomitant]
     Active Substance: CAPECITABINE
  4. OXALIPLATIN [Concomitant]
     Active Substance: OXALIPLATIN
  5. DEXAMETHASONE [Concomitant]
     Active Substance: DEXAMETHASONE
  6. FENTANYL [Concomitant]
     Active Substance: FENTANYL

REACTIONS (5)
  - Death [Fatal]
  - Pancytopenia [Unknown]
  - Delirium [Unknown]
  - Sepsis [Unknown]
  - Off label use [Unknown]
